FAERS Safety Report 5537419-1 (Version None)
Quarter: 2007Q4

REPORT INFORMATION
  Report Type: 
  Country: None (occurrence: None)
  Receive Date: 20071207
  Receipt Date: 20071203
  Transmission Date: 20080405
  Serious: Yes (Hospitalization)
  Sender: FDA-Public Use
  Company Number: B0498560A

PATIENT
  Age: 78 Year
  Sex: Male

DRUGS (7)
  1. AUGMENTIN '125' [Suspect]
     Indication: PNEUMONIA
     Route: 042
     Dates: start: 20071018, end: 20071018
  2. CIDINE (SPAIN) [Suspect]
     Indication: DRUG USE FOR UNKNOWN INDICATION
     Dosage: 3MG PER DAY
     Route: 048
     Dates: start: 20070801, end: 20071010
  3. PENTOXIFYLLINE [Concomitant]
     Route: 065
  4. KALPRESS [Concomitant]
     Route: 048
  5. INSULIN [Concomitant]
     Route: 065
  6. METFORMIN HCL [Concomitant]
     Route: 065
  7. PANTOPRAZOL [Concomitant]

REACTIONS (2)
  - HEPATITIS [None]
  - HYPERBILIRUBINAEMIA [None]
